FAERS Safety Report 5161440-9 (Version None)
Quarter: 2006Q4

REPORT INFORMATION
  Report Type: 
  Country: None (occurrence: None)
  Receive Date: 20061130
  Receipt Date: 20060807
  Transmission Date: 20070319
  Serious: No
  Sender: FDA-Public Use
  Company Number: US-GLAXOSMITHKLINE-A0615901A

PATIENT
  Age: 77 Year
  Sex: Female

DRUGS (6)
  1. WELLBUTRIN XL [Suspect]
     Indication: DEPRESSION
     Dosage: 300MG UNKNOWN
     Route: 048
     Dates: start: 20040312, end: 20050701
  2. ULTRACET [Concomitant]
  3. NEXIUM [Concomitant]
  4. TRICOR [Concomitant]
  5. AVAPRO [Concomitant]
  6. FOSAMAX [Concomitant]

REACTIONS (1)
  - TINNITUS [None]
